FAERS Safety Report 12678687 (Version 1)
Quarter: 2016Q3

REPORT INFORMATION
  Report Type: Report from Study
  Country: US (occurrence: US)
  Receive Date: 20160823
  Receipt Date: 20160823
  Transmission Date: 20161109
  Serious: Yes (Hospitalization)
  Sender: FDA-Public Use
  Company Number: US-AMGEN-USASL2016108650

PATIENT
  Age: 64 Year
  Sex: Female

DRUGS (1)
  1. ENBREL [Suspect]
     Active Substance: ETANERCEPT
     Indication: PSORIASIS
     Dosage: 50 MG, UNK
     Route: 065
     Dates: start: 2011

REACTIONS (4)
  - Pelvic cyst [Recovered/Resolved]
  - Pyrexia [Recovered/Resolved]
  - Hysterectomy [Recovered/Resolved]
  - Fatigue [Not Recovered/Not Resolved]
